FAERS Safety Report 8815838 (Version 2)
Quarter: 2012Q4

REPORT INFORMATION
  Report Type: 
  Country: JP (occurrence: JP)
  Receive Date: 20120928
  Receipt Date: 20121015
  Transmission Date: 20130627
  Serious: Yes (Life-Threatening, Hospitalization)
  Sender: FDA-Public Use
  Company Number: JP-ABBOTT-12P-087-0988996-00

PATIENT
  Age: 41 Year
  Sex: Male

DRUGS (7)
  1. LEUPLIN SR 11.25 MG [Suspect]
     Indication: PROSTATE CANCER
     Route: 058
     Dates: start: 20120911
  2. ECARD [Concomitant]
     Indication: PRODUCT USED FOR UNKNOWN INDICATION
     Route: 048
     Dates: end: 20120914
  3. AMLODIPINE [Concomitant]
     Indication: PRODUCT USED FOR UNKNOWN INDICATION
     Route: 048
     Dates: end: 20120914
  4. CEFTRIAXONE SODIUM [Concomitant]
     Indication: URINARY TRACT INFECTION
     Route: 050
     Dates: start: 20120914, end: 20120918
  5. DESMOPRESIN [Concomitant]
     Indication: URINARY TRACT INFECTION
     Route: 045
     Dates: start: 20120926, end: 20120926
  6. DESMOPRESIN [Concomitant]
     Route: 045
     Dates: start: 20120927, end: 20121003
  7. DESMOPRESIN [Concomitant]
     Dosage: 2 puff + 3 puff per day
     Route: 045
     Dates: start: 20121004

REACTIONS (1)
  - Pituitary haemorrhage [Recovered/Resolved with Sequelae]
